FAERS Safety Report 11654335 (Version 1)
Quarter: 2015Q4

REPORT INFORMATION
  Report Type: Spontaneous
  Country: US (occurrence: None)
  Receive Date: 20151022
  Receipt Date: 20151022
  Transmission Date: 20160304
  Serious: Yes (Disabling)
  Sender: FDA-Public Use
  Company Number: None

PATIENT
  Age: 35 Year
  Sex: Female
  Weight: 63.5 kg

DRUGS (1)
  1. TOPAMAX [Suspect]
     Active Substance: TOPIRAMATE
     Indication: MOOD SWINGS
     Dosage: TAKEN BY MOUTH
     Dates: start: 20070801, end: 20140101

REACTIONS (3)
  - Drug withdrawal syndrome [None]
  - Seizure [None]
  - Migraine [None]

NARRATIVE: CASE EVENT DATE: 20150501
